FAERS Safety Report 5242619-4 (Version None)
Quarter: 2007Q1

REPORT INFORMATION
  Report Type: 
  Country: None (occurrence: None)
  Receive Date: 20070221
  Receipt Date: 20070209
  Transmission Date: 20070707
  Serious: Yes (Disabling)
  Sender: FDA-Public Use
  Company Number: CH-AMGEN-UK205716

PATIENT
  Age: 41 Year
  Sex: Male

DRUGS (7)
  1. NEUPOGEN [Suspect]
     Indication: CHEMOTHERAPY
     Route: 058
     Dates: start: 20060914, end: 20060915
  2. PRIMPERAN [Suspect]
     Route: 048
     Dates: start: 20060901, end: 20060915
  3. NAVOBAN [Suspect]
     Route: 048
     Dates: start: 20060901, end: 20060915
  4. TEMESTA [Suspect]
     Route: 048
     Dates: start: 20060901, end: 20060915
  5. FORTECORTIN [Concomitant]
     Route: 048
     Dates: start: 20060913, end: 20060914
  6. NEXIUM [Concomitant]
     Route: 048
  7. ZYLORIC [Concomitant]
     Route: 048
     Dates: end: 20060921

REACTIONS (5)
  - BACK PAIN [None]
  - BONE PAIN [None]
  - CHEST DISCOMFORT [None]
  - NIGHTMARE [None]
  - SENSORY LOSS [None]
